FAERS Safety Report 9288410 (Version 2)
Quarter: 2013Q2

REPORT INFORMATION
  Report Type: Report from Study
  Country: ES (occurrence: ES)
  Receive Date: 20130514
  Receipt Date: 20130605
  Transmission Date: 20140414
  Serious: No
  Sender: FDA-Public Use
  Company Number: ES-ROCHE-1220734

PATIENT
  Age: 76 Year
  Sex: Female
  Weight: 70 kg

DRUGS (2)
  1. PERTUZUMAB [Suspect]
     Indication: OVARIAN CANCER
     Route: 042
     Dates: start: 20130225
  2. TOPOTECAN [Suspect]
     Indication: OVARIAN CANCER
     Dosage: LAST DOSE PRIOR TO SAE 12/APR/2013
     Route: 042
     Dates: start: 20130225

REACTIONS (1)
  - Muscle rupture [Recovering/Resolving]
